FAERS Safety Report 4808546-9 (Version None)
Quarter: 2005Q4

REPORT INFORMATION
  Report Type: 
  Country: None (occurrence: None)
  Receive Date: 20051021
  Receipt Date: 20020212
  Transmission Date: 20060501
  Serious: No
  Sender: FDA-Public Use
  Company Number: US_020281893

PATIENT
  Age: 65 Year
  Sex: Male

DRUGS (3)
  1. ZYPREXA [Suspect]
     Indication: SCHIZOPHRENIA
     Dosage: 5  MG/DAY
     Dates: start: 20020116, end: 20020131
  2. GASMOTIN            (MOSAPRIDE CITRATE) [Concomitant]
  3. NITRAZEPAM [Concomitant]

REACTIONS (2)
  - PLATELET COUNT DECREASED [None]
  - WHITE BLOOD CELL COUNT DECREASED [None]
